FAERS Safety Report 5942576-9 (Version None)
Quarter: 2008Q4

REPORT INFORMATION
  Report Type: 
  Country: None (occurrence: None)
  Receive Date: 20081105
  Receipt Date: 20081024
  Transmission Date: 20090506
  Serious: Yes (Other)
  Sender: FDA-Public Use
  Company Number: US-PFIZER INC-2008092143

PATIENT
  Sex: Female
  Weight: 67.3 kg

DRUGS (11)
  1. CHANTIX [Suspect]
     Indication: SMOKING CESSATION THERAPY
     Route: 048
     Dates: start: 20080915, end: 20081001
  2. NEXIUM [Concomitant]
  3. PROZAC [Concomitant]
     Indication: DEPRESSION
  4. KLONOPIN [Concomitant]
  5. TOPROL-XL [Concomitant]
     Indication: HYPERTENSION
  6. ZETIA [Concomitant]
     Indication: BLOOD CHOLESTEROL INCREASED
  7. POTASSIUM CHLORIDE [Concomitant]
  8. NEURONTIN [Concomitant]
  9. BACLOFEN [Concomitant]
     Indication: MUSCLE SPASMS
  10. HYDROCODONE [Concomitant]
     Indication: BACK PAIN
  11. MORPHINE SULFATE INJ [Concomitant]
     Indication: BACK PAIN

REACTIONS (3)
  - ABDOMINAL PAIN UPPER [None]
  - DEPRESSION [None]
  - NIGHTMARE [None]
